FAERS Safety Report 4265593-6 (Version None)
Quarter: 2004Q1

REPORT INFORMATION
  Report Type: 
  Country: None (occurrence: None)
  Receive Date: 20040107
  Receipt Date: 20040107
  Transmission Date: 20041129
  Serious: Yes (Hospitalization)
  Sender: FDA-Public Use
  Company Number: None

PATIENT
  Age: 75 Year
  Sex: Male
  Weight: 74.8435 kg

DRUGS (2)
  1. TAXOTERE [Suspect]
     Dosage: 40 MG/M2 D1 + 8 Q21 INTRAVENOUS
     Route: 042
     Dates: start: 20031104, end: 20031217
  2. CARBOPLATIN [Suspect]
     Dosage: AUC=2 D1+8 Q21 INTRAVENOUS
     Route: 042
     Dates: start: 20031104, end: 20031217

REACTIONS (4)
  - DEHYDRATION [None]
  - DIARRHOEA [None]
  - MOUTH ULCERATION [None]
  - MUCOSAL INFLAMMATION [None]
